FAERS Safety Report 8808768 (Version 1)
Quarter: 2012Q4

REPORT INFORMATION
  Report Type: Spontaneous
  Country: US (occurrence: None)
  Receive Date: 20120921
  Receipt Date: 20120921
  Transmission Date: 20130627
  Serious: Yes (Other)
  Sender: FDA-Public Use
  Company Number: None

PATIENT
  Age: 51 Year
  Sex: Female
  Weight: 72.58 kg

DRUGS (2)
  1. ZOLPIDEM [Suspect]
     Indication: BIPOLAR II DISORDER
     Dosage: 10 mg, qhs prn, po
     Route: 048
     Dates: start: 20120831, end: 20120920
  2. ZOLPIDEM [Suspect]
     Indication: INSOMNIA
     Dosage: 10 mg, qhs prn, po
     Route: 048
     Dates: start: 20120831, end: 20120920

REACTIONS (3)
  - Drug ineffective [None]
  - Product substitution issue [None]
  - Middle insomnia [None]
